FAERS Safety Report 9329095 (Version 3)
Quarter: 2013Q3

REPORT INFORMATION
  Report Type: Spontaneous
  Country: US (occurrence: US)
  Receive Date: 20130604
  Receipt Date: 20130906
  Transmission Date: 20140515
  Serious: Yes (Death, Hospitalization)
  Sender: FDA-Public Use
  Company Number: US-GLAXOSMITHKLINE-A1025381A

PATIENT
  Age: 50 Year
  Sex: Female
  Weight: 134.5 kg

DRUGS (19)
  1. PROMACTA [Suspect]
     Indication: IMMUNE THROMBOCYTOPENIC PURPURA
     Dosage: 50MG PER DAY
     Route: 048
  2. AUGMENTIN [Concomitant]
  3. UBIDECARENONE [Concomitant]
  4. EFFEXOR [Concomitant]
  5. HUMALOG MIX [Concomitant]
  6. HYDROCHLOROTHIAZIDE [Concomitant]
  7. LEVOXYL [Concomitant]
  8. METOPROLOL SUCCINATE [Concomitant]
  9. VITAMIN D3 [Concomitant]
  10. ZOCOR [Concomitant]
  11. TOPROL [Concomitant]
  12. SIMVASTATIN [Concomitant]
  13. EFFEXOR [Concomitant]
  14. VICODIN [Concomitant]
  15. COLACE [Concomitant]
  16. ZOFRAN [Concomitant]
  17. MIRALAX [Concomitant]
  18. SENNA [Concomitant]
  19. FENTANYL [Concomitant]

REACTIONS (29)
  - Adnexa uteri mass [Fatal]
  - Malignant peritoneal neoplasm [Fatal]
  - Ascites [Fatal]
  - Multi-organ failure [Unknown]
  - Ovarian cancer [Unknown]
  - Hepatic encephalopathy [Unknown]
  - Brain oedema [Unknown]
  - Unresponsive to stimuli [Unknown]
  - Acute hepatic failure [Unknown]
  - Renal failure acute [Unknown]
  - Brain cancer metastatic [Unknown]
  - Metastases to liver [Unknown]
  - Pelvic neoplasm [Fatal]
  - Mental status changes [Unknown]
  - Abdominal pain [Unknown]
  - Liver function test abnormal [Unknown]
  - Ammonia increased [Unknown]
  - Nausea [Unknown]
  - Vomiting [Unknown]
  - Diaphragm neoplasm [Unknown]
  - Decreased appetite [Unknown]
  - Constipation [Unknown]
  - Scleral discolouration [Unknown]
  - Confusional state [Unknown]
  - Disorientation [Unknown]
  - Coagulopathy [Unknown]
  - Respiratory alkalosis [Unknown]
  - Dehydration [Unknown]
  - Ischaemia [Unknown]
